FAERS Safety Report 19304415 (Version 1)
Quarter: 2021Q2

REPORT INFORMATION
  Report Type: Spontaneous
  Country: US (occurrence: US)
  Receive Date: 20210525
  Receipt Date: 20210525
  Transmission Date: 20210717
  Serious: No
  Sender: FDA-Public Use
  Company Number: US-ASTRAZENECA-2021A369574

PATIENT
  Sex: Female

DRUGS (7)
  1. ALBUTEROL. [Concomitant]
     Active Substance: ALBUTEROL
     Indication: DYSPNOEA
  2. COUGH MEDICINE [Concomitant]
     Active Substance: UNSPECIFIED INGREDIENT
     Indication: DYSPNOEA
     Dosage: UNKNOWN
  3. OXYGEN. [Concomitant]
     Active Substance: OXYGEN
  4. COUGH MEDICINE WITH CODEINE [Concomitant]
     Indication: COUGH
     Route: 048
  5. VENTOLIN [Concomitant]
     Active Substance: ALBUTEROL SULFATE
     Indication: DYSPNOEA
     Dosage: UNKNOWN
     Route: 065
  6. PROAIR HFA [Concomitant]
     Active Substance: ALBUTEROL SULFATE
     Indication: DYSPNOEA
     Dosage: UNKNOWN
     Route: 065
  7. SYMBICORT [Suspect]
     Active Substance: BUDESONIDE\FORMOTEROL FUMARATE DIHYDRATE
     Indication: DYSPNOEA
     Dosage: 160/4.5MCG UNKNOWN UNKNOWN
     Route: 055
     Dates: start: 20210223

REACTIONS (5)
  - Dyspnoea [Unknown]
  - Confusional state [Unknown]
  - Thinking abnormal [Unknown]
  - Device use issue [Unknown]
  - Memory impairment [Unknown]
